FAERS Safety Report 10298268 (Version 1)
Quarter: 2014Q3

REPORT INFORMATION
  Report Type: Spontaneous
  Country: JP (occurrence: JP)
  Receive Date: 20140711
  Receipt Date: 20140711
  Transmission Date: 20150326
  Serious: Yes (Death)
  Sender: FDA-Public Use
  Company Number: JP-ASTELLAS-2014JP008606

PATIENT
  Age: 7 Decade
  Sex: Female
  Weight: 47 kg

DRUGS (9)
  1. TACROLIMUS. [Suspect]
     Active Substance: TACROLIMUS
     Indication: COMPLICATIONS OF TRANSPLANTED LUNG
  2. CORTICOSTEROID NOS [Concomitant]
     Active Substance: CORTICOSTEROID NOS
     Indication: TRANSPLANT REJECTION
     Route: 065
  3. CICLOSPORIN [Concomitant]
     Active Substance: CYCLOSPORINE
     Indication: IMMUNOSUPPRESSANT DRUG THERAPY
     Route: 065
  4. CORTICOSTEROID NOS [Concomitant]
     Active Substance: CORTICOSTEROID NOS
     Indication: OBLITERATIVE BRONCHIOLITIS
  5. CICLOSPORIN [Concomitant]
     Active Substance: CYCLOSPORINE
     Indication: COMPLICATIONS OF TRANSPLANTED LUNG
     Route: 065
  6. TACROLIMUS. [Suspect]
     Active Substance: TACROLIMUS
     Indication: IMMUNOSUPPRESSANT DRUG THERAPY
     Route: 065
  7. TACROLIMUS. [Suspect]
     Active Substance: TACROLIMUS
     Indication: OBLITERATIVE BRONCHIOLITIS
  8. CORTICOSTEROID NOS [Concomitant]
     Active Substance: CORTICOSTEROID NOS
     Indication: COMPLICATIONS OF TRANSPLANTED LUNG
  9. CICLOSPORIN [Concomitant]
     Active Substance: CYCLOSPORINE
     Indication: OBLITERATIVE BRONCHIOLITIS

REACTIONS (3)
  - Complications of transplanted lung [Fatal]
  - Obliterative bronchiolitis [Fatal]
  - Drug ineffective for unapproved indication [Unknown]
